FAERS Safety Report 16861149 (Version 1)
Quarter: 2019Q3

REPORT INFORMATION
  Report Type: Spontaneous
  Country: CA (occurrence: CA)
  Receive Date: 20190927
  Receipt Date: 20190927
  Transmission Date: 20191005
  Serious: Yes (Hospitalization, Other)
  Sender: FDA-Public Use
  Company Number: CA-GILEAD-2019-0430308

PATIENT
  Age: 71 Year
  Sex: Female

DRUGS (16)
  1. AMIODARONE [Suspect]
     Active Substance: AMIODARONE
     Indication: PRODUCT USED FOR UNKNOWN INDICATION
     Route: 065
  2. BISOPROLOL [Suspect]
     Active Substance: BISOPROLOL
     Indication: PRODUCT USED FOR UNKNOWN INDICATION
     Route: 065
  3. HALOPERIDOL. [Concomitant]
     Active Substance: HALOPERIDOL
  4. LEVOTHYROXINE SODIUM. [Concomitant]
     Active Substance: LEVOTHYROXINE SODIUM
  5. HARVONI [Suspect]
     Active Substance: LEDIPASVIR\SOFOSBUVIR
     Indication: HEPATITIS C
     Dosage: 1 DOSAGE FORM, QD
     Route: 048
  6. ONDANSETRON [Concomitant]
     Active Substance: ONDANSETRON
  7. PARACETAMOL [Concomitant]
     Active Substance: ACETAMINOPHEN
  8. FUROSEMIDE. [Concomitant]
     Active Substance: FUROSEMIDE
  9. LASIX [Concomitant]
     Active Substance: FUROSEMIDE
  10. BUDESONIDE;FORMOTEROL FUMARATE [Concomitant]
     Active Substance: BUDESONIDE\FORMOTEROL FUMARATE
  11. GRAVOL [Concomitant]
     Active Substance: DIMENHYDRINATE
  12. LACTULOSE. [Concomitant]
     Active Substance: LACTULOSE
  13. SPIRONOLACTONE. [Concomitant]
     Active Substance: SPIRONOLACTONE
  14. TELMISARTAN. [Concomitant]
     Active Substance: TELMISARTAN
  15. ASPIRIN [ACETYLSALICYLIC ACID] [Concomitant]
     Active Substance: ASPIRIN
  16. PANTOPRAZOLE SODIUM. [Concomitant]
     Active Substance: PANTOPRAZOLE SODIUM
     Dosage: 40 MG, BID
     Route: 048

REACTIONS (12)
  - Hypotension [Unknown]
  - Blood potassium increased [Unknown]
  - Syncope [Unknown]
  - Bradycardia [Unknown]
  - Drug interaction [Unknown]
  - Atrioventricular block complete [Unknown]
  - Atrial fibrillation [Unknown]
  - Hepatic encephalopathy [Unknown]
  - Hepatic function abnormal [Unknown]
  - Delirium [Unknown]
  - Renal impairment [Unknown]
  - Cerebrovascular accident [Unknown]
